FAERS Safety Report 8090401-5 (Version None)
Quarter: 2012Q1

REPORT INFORMATION
  Report Type: 
  Country: None (occurrence: None)
  Receive Date: 20120129
  Receipt Date: 20111201
  Transmission Date: 20120608
  Serious: No
  Sender: FDA-Public Use
  Company Number: US-ABBOTT-11P-163-0879763-00

PATIENT
  Age: 58 Year
  Sex: Female

DRUGS (9)
  1. RESTASIS [Concomitant]
     Indication: EYE DISORDER
     Dosage: EYE DROPS
  2. LYRICA [Concomitant]
     Indication: FIBROMYALGIA
     Dosage: DAILY
  3. HUMIRA [Suspect]
     Indication: ARTHRITIS ENTEROPATHIC
  4. RANITIDINE [Concomitant]
     Indication: GASTRIC DISORDER
     Dosage: DAILY
  5. 2 BLOOD PRESSURE PILLS [Concomitant]
     Indication: PRODUCT USED FOR UNKNOWN INDICATION
  6. ASPIRIN [Concomitant]
     Indication: CARDIOVASCULAR EVENT PROPHYLAXIS
     Dosage: DAILY
  7. ZOCOR [Concomitant]
     Indication: BLOOD CHOLESTEROL INCREASED
     Dosage: DAILY
  8. CELEBREX [Concomitant]
     Indication: ARTHRITIS ENTEROPATHIC
     Dosage: DAILY
  9. FOLIC ACID [Concomitant]
     Indication: PRODUCT USED FOR UNKNOWN INDICATION
     Dosage: DAILY

REACTIONS (1)
  - HERPES ZOSTER [None]
